FAERS Safety Report 5045830-0 (Version None)
Quarter: 2006Q2

REPORT INFORMATION
  Report Type: 
  Country: None (occurrence: None)
  Receive Date: 20060629
  Receipt Date: 20060619
  Transmission Date: 20061013
  Serious: Yes (Life-Threatening)
  Sender: FDA-Public Use
  Company Number: 2006077883

PATIENT
  Age: 63 Year
  Sex: Female
  Weight: 74.8435 kg

DRUGS (3)
  1. NORVASC [Suspect]
     Indication: HYPERTENSION
     Dosage: 5 MG (5 MG, FREQUENCY: QD INTERVAL: EVERY DAY), ORAL
     Route: 048
     Dates: start: 20030101
  2. PAXIL [Suspect]
  3. DRUG, UNSPECIFIED (DRUG, UNSPECIFIED) [Concomitant]

REACTIONS (3)
  - BLOOD PRESSURE INCREASED [None]
  - POLLAKIURIA [None]
  - ROAD TRAFFIC ACCIDENT [None]
